FAERS Safety Report 17853061 (Version 1)
Quarter: 2020Q2

REPORT INFORMATION
  Report Type: Spontaneous
  Country: DE (occurrence: DE)
  Receive Date: 20200603
  Receipt Date: 20200603
  Transmission Date: 20200714
  Serious: Yes (Hospitalization, Other)
  Sender: FDA-Public Use
  Company Number: DE-AUROBINDO-AUR-APL-2020-026597

PATIENT
  Age: 64 Year
  Sex: Female

DRUGS (1)
  1. VALSARTAN PUREN 160 MG FILM-COATED TABLET [Suspect]
     Active Substance: VALSARTAN
     Indication: HYPERTENSION
     Dosage: 160 MILLIGRAM, DAILY
     Route: 048
     Dates: start: 2012

REACTIONS (5)
  - Product impurity [Unknown]
  - Gastrointestinal stromal tumour [Recovered/Resolved]
  - Surgery [Unknown]
  - Hypertensive urgency [Recovered/Resolved]
  - Pain [Recovered/Resolved]

NARRATIVE: CASE EVENT DATE: 201909
